FAERS Safety Report 8132431-0 (Version None)
Quarter: 2012Q1

REPORT INFORMATION
  Report Type: 
  Country: None (occurrence: None)
  Receive Date: 20120208
  Receipt Date: 20120131
  Transmission Date: 20120608
  Serious: Yes (Hospitalization)
  Sender: FDA-Public Use
  Company Number: 2012SP005994

PATIENT
  Age: 72 Year
  Sex: Male

DRUGS (6)
  1. DETURGYLONE (PREDNAZOLINE) [Suspect]
     Indication: BRONCHITIS
     Dosage: 1 DF, TID, NAS
     Route: 045
     Dates: start: 20111227, end: 20111230
  2. CELESTAMINE TAB [Suspect]
     Indication: BRONCHITIS
     Dosage: 1 DF, TID, PO
     Route: 048
     Dates: start: 20120106, end: 20120108
  3. AZITHROMYCIN [Concomitant]
     Indication: BRONCHITIS
     Dosage: 500 KIU, QD, PO
     Route: 048
     Dates: start: 20120106, end: 20120108
  4. PREDNISOLONE [Suspect]
     Indication: BRONCHITIS
     Dosage: PO
     Route: 048
     Dates: start: 20111227, end: 20111230
  5. DEXTROMETHORPHAN HYDROBROMIDE [Suspect]
     Indication: BRONCHITIS
     Dosage: 1 DF, TID, PO
     Route: 048
     Dates: start: 20120106, end: 20120108
  6. PYOSTACINE (PRISTINAMYCIN0 [Suspect]
     Indication: BRONCHITIS
     Dosage: PO
     Route: 048
     Dates: start: 20111227, end: 20120106

REACTIONS (5)
  - CEREBELLAR ISCHAEMIA [None]
  - HEADACHE [None]
  - VISION BLURRED [None]
  - VIITH NERVE PARALYSIS [None]
  - DIZZINESS [None]
